FAERS Safety Report 16245638 (Version 2)
Quarter: 2019Q2

REPORT INFORMATION
  Report Type: Spontaneous
  Country: US (occurrence: US)
  Receive Date: 20190426
  Receipt Date: 20190514
  Transmission Date: 20190711
  Serious: Yes (Death, Hospitalization)
  Sender: FDA-Public Use
  Company Number: US-VIFOR (INTERNATIONAL) INC.-VIT-2019-03748

PATIENT
  Age: 74 Year
  Sex: Male

DRUGS (9)
  1. ASPIRIN 81 [Concomitant]
     Active Substance: ASPIRIN
  2. FUROSEMIDE. [Concomitant]
     Active Substance: FUROSEMIDE
  3. RENVELA [Concomitant]
     Active Substance: SEVELAMER CARBONATE
  4. LOPERAMIDE HCL [Concomitant]
     Active Substance: LOPERAMIDE HYDROCHLORIDE
  5. VELTASSA [Suspect]
     Active Substance: PATIROMER
     Indication: HYPERKALAEMIA
     Route: 048
     Dates: start: 201804
  6. PANTOPRAZOLE SODIUM. [Concomitant]
     Active Substance: PANTOPRAZOLE SODIUM
  7. CLOPIDOGREL BISULFATE. [Concomitant]
     Active Substance: CLOPIDOGREL BISULFATE
  8. COREG [Concomitant]
     Active Substance: CARVEDILOL
  9. MELATONIN [Concomitant]
     Active Substance: MELATONIN

REACTIONS (4)
  - Septic shock [Fatal]
  - Hypotension [Fatal]
  - Skin disorder [Unknown]
  - Off label use [Unknown]

NARRATIVE: CASE EVENT DATE: 20180509
